FAERS Safety Report 9324504 (Version 1)
Quarter: 2013Q2

REPORT INFORMATION
  Report Type: Report from Study
  Country: IN (occurrence: IN)
  Receive Date: 20130603
  Receipt Date: 20130603
  Transmission Date: 20140414
  Serious: Yes (Other)
  Sender: FDA-Public Use
  Company Number: IN-ASTRAZENECA-2013SE36668

PATIENT
  Sex: 0

DRUGS (4)
  1. BUPIVACAINE HYPERBARIC [Suspect]
     Indication: ANAESTHESIA
     Dosage: 2.5-3.5 ML, ONCE SINGLE ADMINISTRATION, 12.5-17.5 MG IN TOTAL
     Route: 037
  2. BUPIVACAINE [Suspect]
     Indication: ANAESTHESIA
     Route: 050
  3. LIDOCAINE [Suspect]
     Indication: ANAESTHESIA
     Route: 050
  4. NORMAL SALINE [Concomitant]
     Route: 050

REACTIONS (1)
  - Anxiety [Unknown]
